FAERS Safety Report 8900405 (Version 1)
Quarter: 2012Q4

REPORT INFORMATION
  Report Type: 
  Country: US (occurrence: US)
  Receive Date: 20121109
  Receipt Date: 20121109
  Transmission Date: 20130627
  Serious: Yes (Other)
  Sender: FDA-Public Use
  Company Number: US-UCBSA-070428

PATIENT
  Age: 42 Year
  Sex: Male
  Weight: 79.37 kg

DRUGS (3)
  1. KEPPRA XR [Suspect]
     Indication: CONVULSION
     Dosage: 3 PILLS IN THE MORNING AND 3 PILLS IN THE NIGHT
     Route: 048
  2. DILANTIN [Concomitant]
     Indication: CONVULSION
     Dosage: 6 1/2 PILLS AT NIGHT
     Route: 048
     Dates: start: 201111
  3. MVI [Concomitant]
     Route: 048

REACTIONS (4)
  - Convulsion [Recovered/Resolved]
  - Drug dose omission [Unknown]
  - Incorrect dose administered [Unknown]
  - Overdose [Unknown]
